FAERS Safety Report 8268841-0 (Version None)
Quarter: 2012Q2

REPORT INFORMATION
  Report Type: 
  Country: None (occurrence: None)
  Receive Date: 20120409
  Receipt Date: 20120409
  Transmission Date: 20120825
  Serious: Yes (Other)
  Sender: FDA-Public Use
  Company Number: None

PATIENT
  Age: 54 Year
  Sex: Female
  Weight: 89.811 kg

DRUGS (1)
  1. PRISTIQ [Suspect]
     Indication: MAJOR DEPRESSION
     Route: 048

REACTIONS (14)
  - ARTHRITIS [None]
  - HYPERACUSIS [None]
  - DRUG DEPENDENCE [None]
  - PHOTOPHOBIA [None]
  - DIARRHOEA [None]
  - PARAESTHESIA [None]
  - FATIGUE [None]
  - MIDDLE INSOMNIA [None]
  - GAIT DISTURBANCE [None]
  - CRYING [None]
  - ANGER [None]
  - DEPRESSION [None]
  - MIGRAINE [None]
  - WEIGHT LOSS POOR [None]
